FAERS Safety Report 13752707 (Version 1)
Quarter: 2017Q3

REPORT INFORMATION
  Report Type: Spontaneous
  Country: US (occurrence: US)
  Receive Date: 20170713
  Receipt Date: 20170713
  Transmission Date: 20171127
  Serious: Yes (Disabling)
  Sender: FDA-Public Use
  Company Number: None

PATIENT
  Age: 54 Year
  Sex: Female
  Weight: 44.1 kg

DRUGS (6)
  1. CARBAMAZEPINE. [Concomitant]
     Active Substance: CARBAMAZEPINE
  2. RIZATRIPTAN. [Concomitant]
     Active Substance: RIZATRIPTAN
  3. SEPTOCAINE [Suspect]
     Active Substance: ARTICAINE HYDROCHLORIDE\EPINEPHRINE BITARTRATE
     Indication: LOCAL ANAESTHESIA
     Dosage: ?          OTHER ROUTE:INJECTION FOR ANESTHESIA FOR DENTAL WORK?
  4. CLARITIN [Concomitant]
     Active Substance: LORATADINE
  5. NASOCORT [Concomitant]
     Active Substance: BUDESONIDE
  6. IBUPROFEN. [Concomitant]
     Active Substance: IBUPROFEN

REACTIONS (15)
  - Insomnia [None]
  - Glossodynia [None]
  - Trigeminal neuralgia [None]
  - Ageusia [None]
  - Hypoaesthesia [None]
  - Drug ineffective [None]
  - Dental plaque [None]
  - Gingival pain [None]
  - Pain [None]
  - Medical device pain [None]
  - Aphthous ulcer [None]
  - Paraesthesia [None]
  - Mastication disorder [None]
  - Drug effect prolonged [None]
  - Noninfective gingivitis [None]

NARRATIVE: CASE EVENT DATE: 20150909
